FAERS Safety Report 4716715-1 (Version None)
Quarter: 2005Q3

REPORT INFORMATION
  Report Type: 
  Country: None (occurrence: None)
  Receive Date: 20050719
  Receipt Date: 20050603
  Transmission Date: 20060218
  Serious: Yes (Other)
  Sender: FDA-Public Use
  Company Number: FR-SANOFI-SYNTHELABO-A02200501561

PATIENT
  Age: 38 Year
  Sex: Female
  Weight: 53 kg

DRUGS (1)
  1. PLAVIX [Suspect]
     Indication: CEREBELLAR INFARCTION
     Route: 048

REACTIONS (3)
  - ABORTION INDUCED [None]
  - DRUG EXPOSURE DURING PREGNANCY [None]
  - PREGNANCY [None]
